FAERS Safety Report 12783992 (Version 1)
Quarter: 2016Q3

REPORT INFORMATION
  Report Type: Spontaneous
  Country: US (occurrence: US)
  Receive Date: 20160927
  Receipt Date: 20160927
  Transmission Date: 20161109
  Serious: Yes (Hospitalization, Other)
  Sender: FDA-Public Use
  Company Number: US-GLAXOSMITHKLINE-US2016139342

PATIENT
  Sex: Female

DRUGS (17)
  1. MIRTAZAPINE. [Concomitant]
     Active Substance: MIRTAZAPINE
  2. LINZESS [Concomitant]
     Active Substance: LINACLOTIDE
  3. HALOPERIDOL. [Concomitant]
     Active Substance: HALOPERIDOL
  4. TIZANIDINE. [Concomitant]
     Active Substance: TIZANIDINE
  5. ATIVAN [Concomitant]
     Active Substance: LORAZEPAM
  6. BENZTROPINE [Concomitant]
     Active Substance: BENZTROPINE
  7. LATUDA [Concomitant]
     Active Substance: LURASIDONE HYDROCHLORIDE
  8. LEVETIRACETAM. [Concomitant]
     Active Substance: LEVETIRACETAM
  9. LORATIDINE [Concomitant]
     Active Substance: LORATADINE
  10. PRAZOSIN [Concomitant]
     Active Substance: PRAZOSIN
  11. NEXIUM [Concomitant]
     Active Substance: ESOMEPRAZOLE MAGNESIUM
  12. SYMBICORT [Concomitant]
     Active Substance: BUDESONIDE\FORMOTEROL FUMARATE DIHYDRATE
  13. BENLYSTA [Suspect]
     Active Substance: BELIMUMAB
     Indication: SYSTEMIC LUPUS ERYTHEMATOSUS
     Dosage: UNK
     Dates: start: 2014
  14. FLONASE [Concomitant]
     Active Substance: FLUTICASONE PROPIONATE
  15. FLUOXETINE [Concomitant]
     Active Substance: FLUOXETINE HYDROCHLORIDE
  16. REXULTI [Concomitant]
     Active Substance: BREXPIPRAZOLE
  17. ALBUTEROL INHALER [Concomitant]
     Active Substance: ALBUTEROL

REACTIONS (17)
  - Feeling abnormal [Recovering/Resolving]
  - Vagal nerve stimulator implantation [Recovered/Resolved]
  - Hysterectomy [Recovered/Resolved]
  - Dizziness [Recovered/Resolved]
  - Hypersensitivity [Recovering/Resolving]
  - Epilepsy [Not Recovered/Not Resolved]
  - Infusion related reaction [Recovered/Resolved]
  - Lymphadenopathy [Unknown]
  - Cognitive disorder [Not Recovered/Not Resolved]
  - Female sterilisation [Recovered/Resolved]
  - Communication disorder [Recovered/Resolved]
  - Mass [Unknown]
  - Ovarian cyst ruptured [Recovered/Resolved]
  - Lymphadenectomy [Unknown]
  - Pyrexia [Recovering/Resolving]
  - Arthropathy [Not Recovered/Not Resolved]
  - Osteoarthritis [Unknown]

NARRATIVE: CASE EVENT DATE: 2015
